FAERS Safety Report 6841262-0 (Version None)
Quarter: 2010Q3

REPORT INFORMATION
  Report Type: 
  Country: None (occurrence: None)
  Receive Date: 20100714
  Receipt Date: 20071207
  Transmission Date: 20110219
  Serious: Yes (Other)
  Sender: FDA-Public Use
  Company Number: US-PFIZER INC-2007053010

PATIENT
  Sex: Female

DRUGS (1)
  1. CHANTIX [Suspect]
     Dates: start: 20070622, end: 20070625

REACTIONS (4)
  - COUGH [None]
  - DYSPNOEA [None]
  - MALAISE [None]
  - NASAL CONGESTION [None]
